FAERS Safety Report 7531998-0 (Version None)
Quarter: 2011Q2

REPORT INFORMATION
  Report Type: 
  Country: None (occurrence: None)
  Receive Date: 20110608
  Receipt Date: 20110606
  Transmission Date: 20111010
  Serious: Yes (Hospitalization, Other)
  Sender: FDA-Public Use
  Company Number: US-ACTELION-A-US2011-49517

PATIENT

DRUGS (9)
  1. TRACLEER [Suspect]
     Indication: PULMONARY ARTERIAL HYPERTENSION
     Dosage: 125 MG, BID
     Route: 048
     Dates: start: 20080401, end: 20110602
  2. COLACE [Concomitant]
  3. MYCOSTATIN [Concomitant]
  4. LEXAPRO [Concomitant]
  5. LASIX [Concomitant]
  6. SYNTHROID [Concomitant]
  7. PRILOSEC [Concomitant]
  8. TYLENOL-500 [Concomitant]
  9. TRACLEER [Suspect]
     Dosage: 62.5 MG, BID
     Route: 048
     Dates: start: 20080301, end: 20080401

REACTIONS (9)
  - PULMONARY ARTERIAL HYPERTENSION [None]
  - RESPIRATORY FAILURE [None]
  - GASTROINTESTINAL HAEMORRHAGE [None]
  - CONDITION AGGRAVATED [None]
  - FALL [None]
  - MENTAL STATUS CHANGES [None]
  - PULMONARY FIBROSIS [None]
  - FLUID OVERLOAD [None]
  - DYSPNOEA [None]
